FAERS Safety Report 17408116 (Version 4)
Quarter: 2021Q3

REPORT INFORMATION
  Report Type: Spontaneous
  Country: JP (occurrence: JP)
  Receive Date: 20200212
  Receipt Date: 20210914
  Transmission Date: 20211014
  Serious: Yes (Hospitalization)
  Sender: FDA-Public Use
  Company Number: NVSJ2020JP001793

PATIENT
  Age: 48 Year
  Sex: Female

DRUGS (2)
  1. VOTRIENT [Suspect]
     Active Substance: PAZOPANIB HYDROCHLORIDE
     Indication: RENAL NEOPLASM
     Dosage: 800 MG, UNK
     Route: 048
     Dates: start: 201904
  2. VOTRIENT [Suspect]
     Active Substance: PAZOPANIB HYDROCHLORIDE
     Dosage: UNK
     Route: 048
     Dates: start: 201910

REACTIONS (8)
  - Hypercalcaemia [Unknown]
  - Malaise [Unknown]
  - Angiogram pulmonary abnormal [Unknown]
  - Cardiomyopathy [Recovered/Resolved]
  - Cardiac failure congestive [Recovered/Resolved]
  - Cardiomegaly [Unknown]
  - Dyspnoea [Unknown]
  - Left ventricular dysfunction [Unknown]

NARRATIVE: CASE EVENT DATE: 201907
